FAERS Safety Report 22612586 (Version 1)
Quarter: 2023Q2

REPORT INFORMATION
  Report Type: Spontaneous
  Country: ES (occurrence: None)
  Receive Date: 20230617
  Receipt Date: 20230617
  Transmission Date: 20230722
  Serious: Yes (Hospitalization)
  Sender: FDA-Public Use
  Company Number: 2023A137399

PATIENT
  Sex: Female

DRUGS (6)
  1. XIGDUO XR [Suspect]
     Active Substance: DAPAGLIFLOZIN PROPANEDIOL\METFORMIN HYDROCHLORIDE
     Route: 048
     Dates: start: 20230421, end: 20230516
  2. ASPIRIN [Concomitant]
     Active Substance: ASPIRIN
     Dates: start: 20120518
  3. ENALAPRIL NORMON [Concomitant]
     Dates: start: 20120518
  4. ATORVASTATINA NORMOGEN [Concomitant]
     Dates: start: 20190529
  5. FLATORIL [Concomitant]
     Dates: start: 20161014
  6. SOLIFENACIN\TAMSULOSIN [Concomitant]
     Active Substance: SOLIFENACIN\TAMSULOSIN
     Dates: start: 20160302

REACTIONS (1)
  - Metabolic acidosis [Recovered/Resolved]

NARRATIVE: CASE EVENT DATE: 20230516
